FAERS Safety Report 5178827-0 (Version None)
Quarter: 2006Q4

REPORT INFORMATION
  Report Type: 
  Country: None (occurrence: None)
  Receive Date: 20061208
  Receipt Date: 20061123
  Transmission Date: 20070319
  Serious: Yes (Other)
  Sender: FDA-Public Use
  Company Number: 2006EU002739

PATIENT
  Sex: Female

DRUGS (5)
  1. PROGRAF [Suspect]
     Indication: HEART TRANSPLANT
     Dosage: 3 MG, BID, ORAL
     Route: 048
  2. PREDNISONE [Suspect]
     Indication: HEART TRANSPLANT
     Dosage: 5 MG, ORAL
     Route: 048
  3. IMURAN [Suspect]
     Indication: HEART TRANSPLANT
     Dosage: 50 MG/D, ORAL
     Route: 048
  4. PRAVASTATIN [Suspect]
     Dosage: 40 MG, ORAL
     Route: 048
  5. PANTOPRAZOLE SODIUM [Suspect]
     Dosage: 20 MG/D, ORAL
     Route: 048

REACTIONS (14)
  - ABORTION [None]
  - CLEFT LIP [None]
  - CONGENITAL ANOMALY [None]
  - CONGENITAL CENTRAL NERVOUS SYSTEM ANOMALY [None]
  - CONGENITAL MUSCULOSKELETAL ANOMALY [None]
  - DRUG EXPOSURE DURING PREGNANCY [None]
  - HISTOLOGY ABNORMAL [None]
  - KIDNEY MALFORMATION [None]
  - PLACENTAL DISORDER [None]
  - PREGNANCY [None]
  - RENAL ATROPHY [None]
  - SKELETON DYSPLASIA [None]
  - SKIN HYPERTROPHY [None]
  - TALIPES [None]
